FAERS Safety Report 9565192 (Version 1)
Quarter: 2013Q3

REPORT INFORMATION
  Report Type: Report from Study
  Country: ES (occurrence: ES)
  Receive Date: 20130930
  Receipt Date: 20130930
  Transmission Date: 20140515
  Serious: Yes (Death, Hospitalization, Other)
  Sender: FDA-Public Use
  Company Number: ES-PFIZER INC-2013276013

PATIENT
  Age: 79 Year
  Sex: Male

DRUGS (6)
  1. ALDACTONE [Suspect]
     Dosage: 25 MG/DAY
     Route: 048
     Dates: end: 20110202
  2. FUROSEMIDE [Interacting]
     Dosage: 20 MG, DAILY
     Route: 048
     Dates: start: 20110104, end: 20110220
  3. ENALAPRIL [Interacting]
     Indication: HYPERTENSION
     Dosage: UNK
     Route: 048
     Dates: start: 20110104, end: 20110131
  4. LOBIVON [Interacting]
     Dosage: 10 MG, DAILY
     Route: 048
     Dates: start: 200909, end: 20110220
  5. MOTILIUM [Concomitant]
     Dosage: 30 MG, DAILY
     Dates: start: 20110104, end: 20110131
  6. SINTROM [Concomitant]
     Dosage: UNK
     Dates: end: 20110201

REACTIONS (5)
  - Drug interaction [Fatal]
  - Hyperkalaemia [Fatal]
  - Renal failure acute [Fatal]
  - Hypotension [Not Recovered/Not Resolved]
  - Intestinal ischaemia [Unknown]
